FAERS Safety Report 7512990-9 (Version None)
Quarter: 2011Q2

REPORT INFORMATION
  Report Type: 
  Country: None (occurrence: None)
  Receive Date: 20110531
  Receipt Date: 20110527
  Transmission Date: 20111010
  Serious: Yes (Hospitalization, Other)
  Sender: FDA-Public Use
  Company Number: JP-PFIZER INC-2011115684

PATIENT
  Age: 65 Year
  Sex: Male

DRUGS (3)
  1. LYRICA [Suspect]
     Indication: BACK PAIN
     Dosage: 150MG DAILY
     Route: 048
     Dates: start: 20110419, end: 20110520
  2. CELECOXIB [Concomitant]
     Dosage: 2 UNK, UNK
     Route: 048
     Dates: start: 20110419
  3. FAMOTIDINE [Concomitant]
     Dosage: UNK
     Route: 048
     Dates: start: 20110419

REACTIONS (3)
  - COGNITIVE DISORDER [None]
  - DIZZINESS [None]
  - SOMNOLENCE [None]
